FAERS Safety Report 25399405 (Version 1)
Quarter: 2025Q2

REPORT INFORMATION
  Report Type: Spontaneous
  Country: US (occurrence: US)
  Receive Date: 20250605
  Receipt Date: 20250605
  Transmission Date: 20250717
  Serious: Yes (Other)
  Sender: TOLMAR
  Company Number: US-Tolmar-TLM-2025-02830

PATIENT
  Age: 10 Month
  Sex: Male

DRUGS (1)
  1. TESTOSTERONE [Suspect]
     Active Substance: TESTOSTERONE
     Indication: Secondary hypogonadism

REACTIONS (3)
  - Obstructive sleep apnoea syndrome [Unknown]
  - Condition aggravated [Unknown]
  - Lipoma [Unknown]
